FAERS Safety Report 17611603 (Version 2)
Quarter: 2020Q3

REPORT INFORMATION
  Report Type: Spontaneous
  Country: JP (occurrence: JP)
  Receive Date: 20200401
  Receipt Date: 20200908
  Transmission Date: 20201102
  Serious: No
  Sender: FDA-Public Use
  Company Number: JP-DSJP-DSJ-2020-110029

PATIENT

DRUGS (14)
  1. LIXIANA OD TABLETS 30MG [Suspect]
     Active Substance: EDOXABAN TOSYLATE
     Indication: DEEP VEIN THROMBOSIS
  2. LANSOPRAZOLE. [Concomitant]
     Active Substance: LANSOPRAZOLE
     Dosage: 15 MG, QD
     Route: 048
  3. FENTANYL                           /00174602/ [Concomitant]
     Active Substance: FENTANYL
     Dosage: 200 UG
     Route: 041
     Dates: start: 20200219, end: 20200219
  4. ROCURONIUM BROMIDE. [Concomitant]
     Active Substance: ROCURONIUM BROMIDE
     Dosage: 50 MG
     Route: 041
     Dates: start: 20200219, end: 20200219
  5. METHYCOBAL [Concomitant]
     Active Substance: METHYLCOBALAMIN
     Dosage: 500 UG, TID
     Route: 048
  6. TRAZENTA [Concomitant]
     Active Substance: LINAGLIPTIN
     Indication: DIABETES MELLITUS
     Dosage: 5 MG, QD
     Route: 048
  7. LIXIANA OD TABLETS 30MG [Suspect]
     Active Substance: EDOXABAN TOSYLATE
     Indication: PULMONARY ARTERY THROMBOSIS
     Dosage: 30 MG, QD
     Route: 048
     Dates: start: 20200214, end: 20200325
  8. FLUVASTATIN                        /01224502/ [Concomitant]
     Active Substance: FLUVASTATIN SODIUM
     Indication: HYPERLIPIDAEMIA
     Dosage: 20 MG, QD
     Route: 048
  9. BRIDION [Concomitant]
     Active Substance: SUGAMMADEX
     Dosage: 100 MG
     Route: 041
     Dates: start: 20200219, end: 20200219
  10. PROPOFOL. [Concomitant]
     Active Substance: PROPOFOL
     Dosage: 40 MG
     Route: 041
     Dates: start: 20200219, end: 20200219
  11. AMLODIPINE                         /00972402/ [Concomitant]
     Active Substance: AMLODIPINE BESYLATE
     Indication: HYPERTENSION
     Dosage: 2.5 MG, QD
     Route: 048
  12. ULTIVA [Concomitant]
     Active Substance: REMIFENTANIL HYDROCHLORIDE
     Dosage: 0.317 MG
     Route: 041
     Dates: start: 20200219, end: 20200219
  13. LIXIANA OD TABLETS 30MG [Suspect]
     Active Substance: EDOXABAN TOSYLATE
     Indication: PULMONARY EMBOLISM
  14. FEXOFENADINE HYDROCHLORIDE. [Concomitant]
     Active Substance: FEXOFENADINE HYDROCHLORIDE
     Dosage: 60 MG, BID
     Route: 048

REACTIONS (1)
  - Hepatic function abnormal [Recovered/Resolved]

NARRATIVE: CASE EVENT DATE: 20200324
